FAERS Safety Report 8605552 (Version 2)
Quarter: 2012Q4

REPORT INFORMATION
  Report Type: 
  Country: IT (occurrence: IT)
  Receive Date: 20120608
  Receipt Date: 20121207
  Transmission Date: 20130627
  Serious: Yes (Other)
  Sender: FDA-Public Use
  Company Number: PHHO2010IT19407

PATIENT
  Age: 30 Year
  Sex: Male
  Weight: 72 kg

DRUGS (7)
  1. NEORAL [Suspect]
     Indication: RENAL TRANSPLANT
     Dosage: 75 mg, QD
     Route: 048
     Dates: start: 20091213, end: 20101224
  2. CERTICAN [Concomitant]
     Indication: RENAL TRANSPLANT
     Dosage: 0.5 mg, BID
     Route: 048
     Dates: start: 20091214
  3. DELTACORTENE [Concomitant]
     Indication: IMMUNOSUPPRESSION
     Dosage: 5 mg, QD
     Route: 048
     Dates: start: 20100629
  4. MAG 2 [Concomitant]
     Route: 048
     Dates: start: 20091216
  5. KCL-RETARD [Concomitant]
     Indication: HYPOKALAEMIA
     Dates: start: 20091216
  6. CALCITRIOL [Concomitant]
     Dates: start: 20091221
  7. RANIDIL [Concomitant]
     Indication: PROPHYLAXIS
     Dates: start: 20100120

REACTIONS (1)
  - Post transplant lymphoproliferative disorder [Recovered/Resolved]
